FAERS Safety Report 12423688 (Version 1)
Quarter: 2016Q2

REPORT INFORMATION
  Report Type: Spontaneous
  Country: US (occurrence: None)
  Receive Date: 20160531
  Receipt Date: 20160531
  Transmission Date: 20160815
  Serious: Yes (Hospitalization)
  Sender: FDA-Public Use
  Company Number: None

PATIENT
  Age: 80 Year
  Sex: Male
  Weight: 96.16 kg

DRUGS (5)
  1. TYLENOL [Concomitant]
     Active Substance: ACETAMINOPHEN
  2. ALLOPURINOL. [Concomitant]
     Active Substance: ALLOPURINOL
  3. WARFARIN [Concomitant]
     Active Substance: WARFARIN
  4. HYDROXYUREA. [Concomitant]
     Active Substance: HYDROXYUREA
  5. ENOXAPARIN SODIUM, 100 MG WINTHROP/SANOFI [Suspect]
     Active Substance: ENOXAPARIN SODIUM
     Indication: THROMBOSIS
     Dosage: 8 INJECTION(S) TWICE A DAY INTO THE MUSCLE
     Route: 030
     Dates: start: 20160408, end: 20160411

REACTIONS (4)
  - Abdominal pain [None]
  - Contusion [None]
  - Swelling [None]
  - Musculoskeletal pain [None]

NARRATIVE: CASE EVENT DATE: 20160408
